FAERS Safety Report 8463507-6 (Version None)
Quarter: 2012Q2

REPORT INFORMATION
  Report Type: 
  Country: None (occurrence: None)
  Receive Date: 20120625
  Receipt Date: 20120620
  Transmission Date: 20120825
  Serious: Yes (Death)
  Sender: FDA-Public Use
  Company Number: DE-PFIZER INC-2012010492

PATIENT
  Age: 44 Year
  Sex: Male
  Weight: 180 kg

DRUGS (3)
  1. CASPOFUNGIN [Concomitant]
     Indication: SOFT TISSUE INFECTION
     Dosage: 70 MG/DAY
     Route: 042
     Dates: start: 20120102, end: 20120110
  2. TIGECYCLINE [Suspect]
     Indication: SOFT TISSUE INFECTION
     Dosage: 50 MG, 2X/DAY
     Route: 042
     Dates: start: 20111228, end: 20120110
  3. CIPROFLOXACIN [Concomitant]
     Indication: SOFT TISSUE INFECTION
     Dosage: 400 MG, 2X/DAY
     Route: 042
     Dates: start: 20111228, end: 20120110

REACTIONS (1)
  - HEPATIC NECROSIS [None]
